FAERS Safety Report 15178123 (Version 1)
Quarter: 2018Q3

REPORT INFORMATION
  Report Type: Report from Study
  Country: DE (occurrence: DE)
  Receive Date: 20180721
  Receipt Date: 20180721
  Transmission Date: 20181010
  Serious: Yes (Congenital Anomaly, Other)
  Sender: FDA-Public Use
  Company Number: DE-AUROBINDO-AUR-APL-2018-036897

PATIENT
  Sex: Female

DRUGS (5)
  1. SALBUTAMOL [Concomitant]
     Active Substance: ALBUTEROL
     Indication: PRODUCT USED FOR UNKNOWN INDICATION
     Dosage: UNK,EXPOSURE DURATION: 0?5+6 WEEKS
     Route: 064
  2. RAMIPRIL. [Suspect]
     Active Substance: RAMIPRIL
     Indication: HYPERTENSION
     Dosage: 5 MILLIGRAM,EXPOSURE DURATION: 0?5+6 WEEKS
     Route: 064
  3. FLUTICASONE. [Concomitant]
     Active Substance: FLUTICASONE
     Indication: PRODUCT USED FOR UNKNOWN INDICATION
     Dosage: UNK,EXPOSURE DURATION: 0?5+6 WEEKS
     Route: 064
  4. THYROXINE [Concomitant]
     Active Substance: LEVOTHYROXINE
     Indication: PRODUCT USED FOR UNKNOWN INDICATION
     Dosage: UNK,EXPOSURE DURATION: 0?35 WEEKS
     Route: 064
  5. SALMETEROL [Concomitant]
     Active Substance: SALMETEROL
     Indication: PRODUCT USED FOR UNKNOWN INDICATION
     Dosage: UNK,EXPOSURE DURATION: 0?5+6 WEEKS
     Route: 064

REACTIONS (9)
  - Foetal exposure during pregnancy [Unknown]
  - Developmental delay [Unknown]
  - Apnoea [Unknown]
  - Atrial septal defect [Unknown]
  - Dysmorphism [Unknown]
  - Patent ductus arteriosus [Unknown]
  - Hypotonia [Unknown]
  - Bradycardia [Unknown]
  - Tricuspid valve incompetence [Unknown]
